FAERS Safety Report 18707458 (Version 1)
Quarter: 2021Q1

REPORT INFORMATION
  Report Type: Spontaneous
  Country: US (occurrence: US)
  Receive Date: 20210106
  Receipt Date: 20210106
  Transmission Date: 20210419
  Serious: No
  Sender: FDA-Public Use
  Company Number: US-PERRIGO-20US016870

PATIENT
  Sex: Female

DRUGS (2)
  1. BETAMETHASONE VALERATE. [Suspect]
     Active Substance: BETAMETHASONE VALERATE
     Dosage: SMALL AMOUNT, SINGLE
     Route: 061
     Dates: start: 20201117, end: 20201117
  2. BETAMETHASONE VALERATE. [Suspect]
     Active Substance: BETAMETHASONE VALERATE
     Indication: SEBORRHOEA
     Dosage: SMALL AMOUNT, QD FOR 2 WEEKS
     Route: 061
     Dates: start: 2017, end: 2017

REACTIONS (3)
  - Application site paraesthesia [Recovered/Resolved]
  - Inappropriate schedule of product administration [Recovered/Resolved]
  - Expired product administered [Recovered/Resolved]

NARRATIVE: CASE EVENT DATE: 2017
